FAERS Safety Report 25474277 (Version 2)
Quarter: 2025Q4

REPORT INFORMATION
  Report Type: Report from Study
  Country: EU (occurrence: EU)
  Receive Date: 20250624
  Receipt Date: 20251017
  Transmission Date: 20260118
  Serious: Yes (Hospitalization, Other)
  Sender: ORGANON
  Company Number: None

PATIENT
  Age: 54 Year
  Sex: Male

DRUGS (9)
  1. MIRTAZAPINE [Suspect]
     Active Substance: MIRTAZAPINE
     Dosage: MIRTAZAPINE 45 MG
  2. QUETIAPINE [Suspect]
     Active Substance: QUETIAPINE
     Dosage: UNK
  3. CLORAZEPATE DIPOTASSIUM [Suspect]
     Active Substance: CLORAZEPATE DIPOTASSIUM
     Dosage: CLORAZEPATE 50 MG
  4. TICAGRELOR [Suspect]
     Active Substance: TICAGRELOR
     Dosage: TICAGRELOR 90MG
  5. Sacubitrilo/Valsart?n 49 mg/51 mg comprimido [Concomitant]
     Dosage: UNK
  6. LEVETIRACETAM [Concomitant]
     Active Substance: LEVETIRACETAM
     Dosage: LEVETIRACETAM 500MG
  7. BIPERIDENO (500A) [Concomitant]
     Dosage: BIPERIDENE 4 MG
  8. Nitroglicerina 5 mg/24 h 30 parches transdermicos (tipo 4) [Concomitant]
     Dosage: NTG PATCH 5MG (30 TRANSDERMAL PATCHES)
     Dates: start: 20230421
  9. BISOPROLOL [Concomitant]
     Active Substance: BISOPROLOL
     Dosage: BISOPROLOL 2.5 MG

REACTIONS (2)
  - Anaemia [Recovered/Resolved]
  - Ileus paralytic [Recovered/Resolved]

NARRATIVE: CASE EVENT DATE: 20250208
